FAERS Safety Report 10042546 (Version 1)
Quarter: 2014Q1

REPORT INFORMATION
  Report Type: Spontaneous
  Country: US (occurrence: None)
  Receive Date: 20140325
  Receipt Date: 20140325
  Transmission Date: 20141002
  Serious: Yes (Hospitalization, Other)
  Sender: FDA-Public Use
  Company Number: FK201400952

PATIENT
  Age: 17 Year
  Sex: Female
  Weight: 54.43 kg

DRUGS (4)
  1. DOXY 100 [Suspect]
     Indication: LYME DISEASE
     Route: 041
     Dates: start: 20140303, end: 20140303
  2. ZITHROMAX (AZITHROMYCIN) [Concomitant]
  3. ADDERALL (OBETROL/01345401/) [Concomitant]
  4. ROCEPHIN (CEFTRIAXONE SODIUM) [Concomitant]

REACTIONS (1)
  - Convulsion [None]
